FAERS Safety Report 5679773-6 (Version None)
Quarter: 2008Q1

REPORT INFORMATION
  Report Type: 
  Country: None (occurrence: None)
  Receive Date: 20080321
  Receipt Date: 20080318
  Transmission Date: 20080703
  Serious: Yes (Death)
  Sender: FDA-Public Use
  Company Number: DSA_31588_2008

PATIENT
  Age: 83 Year
  Sex: Female

DRUGS (3)
  1. LORAZEPAM [Suspect]
     Indication: DRUG USE FOR UNKNOWN INDICATION
     Dosage: (DF ORAL)
     Route: 048
     Dates: start: 20060101
  2. EXTUR (EXTUR - INDAPAMIDE) [Suspect]
     Indication: DRUG USE FOR UNKNOWN INDICATION
     Dosage: (DF ORAL)
     Route: 048
     Dates: start: 20060101
  3. ROTIGOTINE (NEUPRO - ROTIGOTINE) [Suspect]
     Indication: PARKINSON'S DISEASE
     Dosage: (DF TRANSDERMAL)
     Route: 062
     Dates: start: 20070915, end: 20071015

REACTIONS (1)
  - BONE MARROW FAILURE [None]
